FAERS Safety Report 6118123-8 (Version None)
Quarter: 2009Q1

REPORT INFORMATION
  Report Type: 
  Country: None (occurrence: None)
  Receive Date: 20090314
  Receipt Date: 20090219
  Transmission Date: 20090719
  Serious: No
  Sender: FDA-Public Use
  Company Number: US-ABBOTT-09P-163-0502799-00

PATIENT
  Sex: Female
  Weight: 52.21 kg

DRUGS (10)
  1. HUMIRA [Suspect]
     Indication: CROHN'S DISEASE
     Route: 058
     Dates: start: 20081107, end: 20090101
  2. HUMIRA [Suspect]
     Route: 058
     Dates: start: 20090101
  3. PREDNISONE [Concomitant]
     Indication: CROHN'S DISEASE
     Dosage: QD
     Route: 048
  4. PROTONIX [Concomitant]
     Indication: GASTROOESOPHAGEAL REFLUX DISEASE
     Route: 048
  5. CANASA [Concomitant]
     Indication: CROHN'S DISEASE
     Route: 054
  6. CIPROFLOXACIN HCL [Concomitant]
     Indication: CROHN'S DISEASE
     Dosage: QOD
     Route: 048
  7. PROBIOTIC-VSL [Concomitant]
     Indication: CROHN'S DISEASE
     Dosage: POWDER MIX
     Route: 048
  8. FLORASTOR [Concomitant]
     Indication: CROHN'S DISEASE
     Dosage: QOD
     Route: 048
  9. CALCIUM CALTRATE D [Concomitant]
     Indication: MINERAL SUPPLEMENTATION
     Route: 048
  10. MULTI-VITAMIN [Concomitant]
     Indication: VITAMIN SUPPLEMENTATION
     Route: 048

REACTIONS (2)
  - DIZZINESS [None]
  - DRUG INEFFECTIVE [None]
